FAERS Safety Report 10443892 (Version 1)
Quarter: 2014Q3

REPORT INFORMATION
  Report Type: Spontaneous
  Country: DE (occurrence: DE)
  Receive Date: 20140910
  Receipt Date: 20140910
  Transmission Date: 20150326
  Serious: Yes (Congenital Anomaly)
  Sender: FDA-Public Use
  Company Number: GXKR2014DE003418

PATIENT

DRUGS (4)
  1. BUDECORT [Suspect]
     Active Substance: BUDESONIDE
     Indication: ALLERGIC COUGH
     Route: 064
     Dates: start: 20130527, end: 20140313
  2. MONTELUKAST SODIUM. [Suspect]
     Active Substance: MONTELUKAST SODIUM
     Indication: ALLERGIC COUGH
     Dosage: 10 [MG/D ]
     Route: 064
     Dates: start: 20130527, end: 20130621
  3. AMOXICILLIN. [Concomitant]
     Active Substance: AMOXICILLIN
     Indication: PNEUMONIA
     Dosage: 3000 [MG/D (3X1000) ]
     Route: 064
  4. CETIRIZINE [Suspect]
     Active Substance: CETIRIZINE HYDROCHLORIDE
     Indication: HYPERSENSITIVITY
     Dosage: 10 [MG/D ]
     Route: 064
     Dates: start: 20130527, end: 20140313

REACTIONS (2)
  - Atrial septal defect [Not Recovered/Not Resolved]
  - Pulmonary artery stenosis [Not Recovered/Not Resolved]
